FAERS Safety Report 5265336-3 (Version None)
Quarter: 2007Q1

REPORT INFORMATION
  Report Type: 
  Country: None (occurrence: None)
  Receive Date: 20070314
  Receipt Date: 20070228
  Transmission Date: 20070707
  Serious: Yes (Life-Threatening, Hospitalization, Disabling)
  Sender: FDA-Public Use
  Company Number: BE-SANOFI-SYNTHELABO-A01200702150

PATIENT
  Sex: Male
  Weight: 100 kg

DRUGS (2)
  1. PLAVIX [Suspect]
     Indication: DRUG USE FOR UNKNOWN INDICATION
     Dosage: UNK
     Route: 048
  2. ASPIRIN [Interacting]
     Indication: BLOOD DISORDER
     Dosage: UNK
     Route: 065

REACTIONS (5)
  - COMA [None]
  - DRUG INTERACTION [None]
  - HEADACHE [None]
  - VOMITING [None]
  - WEIGHT DECREASED [None]
